FAERS Safety Report 23286335 (Version 1)
Quarter: 2023Q4

REPORT INFORMATION
  Report Type: Spontaneous
  Country: CN (occurrence: CN)
  Receive Date: 20231212
  Receipt Date: 20231212
  Transmission Date: 20240110
  Serious: Yes (Other)
  Sender: FDA-Public Use
  Company Number: CN-GILEAD-2023-0652348

PATIENT
  Age: 29 Year
  Sex: Male
  Weight: 70.2 kg

DRUGS (1)
  1. BIKTARVY [Suspect]
     Active Substance: BICTEGRAVIR SODIUM\EMTRICITABINE\TENOFOVIR ALAFENAMIDE FUMARATE
     Indication: HIV infection
     Route: 048

REACTIONS (5)
  - Renal disorder [Unknown]
  - Poor quality sleep [Unknown]
  - Pyrexia [Unknown]
  - Abdominal discomfort [Unknown]
  - Terminal insomnia [Unknown]
